FAERS Safety Report 8078411-5 (Version None)
Quarter: 2012Q1

REPORT INFORMATION
  Report Type: 
  Country: None (occurrence: None)
  Receive Date: 20120127
  Receipt Date: 20110104
  Transmission Date: 20120608
  Serious: No
  Sender: FDA-Public Use
  Company Number: US-ABBOTT-10P-163-0648265-00

PATIENT
  Sex: Male
  Weight: 3.269 kg

DRUGS (1)
  1. HUMIRA [Suspect]
     Indication: MATERNAL EXPOSURE TIMING UNSPECIFIED
     Route: 064

REACTIONS (3)
  - BLOOD GLUCOSE DECREASED [None]
  - FOETAL EXPOSURE DURING PREGNANCY [None]
  - RESPIRATORY RATE INCREASED [None]
